FAERS Safety Report 24226083 (Version 1)
Quarter: 2024Q3

REPORT INFORMATION
  Report Type: Spontaneous
  Country: IN (occurrence: None)
  Receive Date: 20240820
  Receipt Date: 20240820
  Transmission Date: 20241017
  Serious: Yes (Other)
  Sender: ENCUBE ETHICALS
  Company Number: IN-Encube-001282

PATIENT
  Age: 14 Year
  Sex: Female

DRUGS (1)
  1. METRONIDAZOLE [Suspect]
     Active Substance: METRONIDAZOLE
     Indication: Hepatic amoebiasis
     Dosage: PROLONGED INJECTION FOR 4 WK

REACTIONS (6)
  - Encephalopathy [Recovered/Resolved]
  - Dysmetria [Recovered/Resolved]
  - Aggression [Recovered/Resolved]
  - Ataxia [Recovered/Resolved]
  - Off label use [Unknown]
  - Abnormal behaviour [Recovered/Resolved]
